FAERS Safety Report 8184806-1 (Version None)
Quarter: 2012Q1

REPORT INFORMATION
  Report Type: 
  Country: None (occurrence: None)
  Receive Date: 20120305
  Receipt Date: 20120227
  Transmission Date: 20120608
  Serious: Yes (Hospitalization)
  Sender: FDA-Public Use
  Company Number: US-BAYER-2011-037934

PATIENT
  Age: 30 Year
  Sex: Female
  Weight: 65.76 kg

DRUGS (1)
  1. YAZ [Suspect]
     Indication: PRODUCT USED FOR UNKNOWN INDICATION
     Dosage: UNK
     Route: 048
     Dates: start: 20090309, end: 20090406

REACTIONS (11)
  - PAIN [None]
  - BLOOD PRESSURE INADEQUATELY CONTROLLED [None]
  - MEMORY IMPAIRMENT [None]
  - ANXIETY [None]
  - HEART RATE INCREASED [None]
  - ANHEDONIA [None]
  - TRANSIENT ISCHAEMIC ATTACK [None]
  - THINKING ABNORMAL [None]
  - DYSARTHRIA [None]
  - INJURY [None]
  - HEADACHE [None]
